FAERS Safety Report 9104183 (Version 2)
Quarter: 2013Q1

REPORT INFORMATION
  Report Type: Spontaneous
  Country: IN (occurrence: IN)
  Receive Date: 20130219
  Receipt Date: 20130308
  Transmission Date: 20140127
  Serious: Yes (Other)
  Sender: FDA-Public Use
  Company Number: PHHY2013IN014999

PATIENT
  Age: 68 Year
  Sex: Female

DRUGS (3)
  1. ACLASTA [Suspect]
     Indication: BLOOD CALCIUM DECREASED
     Dosage: 5MG/100ML/YEAR
     Route: 042
     Dates: start: 2010
  2. ACLASTA [Suspect]
     Dosage: 5MG/100ML/YEAR
     Route: 042
     Dates: start: 2011
  3. ACLASTA [Suspect]
     Dosage: 5MG/100ML/YEAR
     Route: 042
     Dates: start: 20130123

REACTIONS (2)
  - Limb injury [Not Recovered/Not Resolved]
  - Hand fracture [Not Recovered/Not Resolved]
